FAERS Safety Report 8699840 (Version 3)
Quarter: 2015Q1

REPORT INFORMATION
  Report Type: Spontaneous
  Country: US (occurrence: US)
  Receive Date: 20120802
  Receipt Date: 20150331
  Transmission Date: 20150721
  Serious: Yes (Other)
  Sender: FDA-Public Use
  Company Number: US-ASTRAZENECA-2012SE49417

PATIENT
  Age: 15320 Day
  Sex: Male
  Weight: 83.9 kg

DRUGS (8)
  1. SEROQUEL [Suspect]
     Active Substance: QUETIAPINE FUMARATE
     Indication: SCHIZOPHRENIA
     Route: 048
     Dates: start: 2011
  2. SEROQUEL [Suspect]
     Active Substance: QUETIAPINE FUMARATE
     Indication: SLEEP DISORDER
     Route: 048
     Dates: start: 2011
  3. SEROQUEL [Suspect]
     Active Substance: QUETIAPINE FUMARATE
     Indication: SCHIZOPHRENIA
     Route: 048
  4. CIALIS [Suspect]
     Active Substance: TADALAFIL
     Route: 065
  5. LEVITRA [Suspect]
     Active Substance: VARDENAFIL HYDROCHLORIDE TRIHYDRATE
     Route: 065
  6. ZOLOFT [Suspect]
     Active Substance: SERTRALINE HYDROCHLORIDE
     Indication: AGITATION
     Dosage: NON AZ PRODUCT
     Route: 065
  7. SEROQUEL [Suspect]
     Active Substance: QUETIAPINE FUMARATE
     Indication: SLEEP DISORDER
     Route: 048
  8. VIAGRA [Suspect]
     Active Substance: SILDENAFIL CITRATE
     Indication: LOSS OF LIBIDO
     Dosage: AS NEEDED
     Route: 048
     Dates: start: 2005

REACTIONS (11)
  - Flat affect [Unknown]
  - Fatigue [Unknown]
  - Schizophrenia, paranoid type [Not Recovered/Not Resolved]
  - Type 2 diabetes mellitus [Unknown]
  - Erectile dysfunction [Unknown]
  - Intentional product misuse [Unknown]
  - Neuralgia [Unknown]
  - Non-consummation [Unknown]
  - Agitation [Unknown]
  - Drug ineffective [Unknown]
  - Libido decreased [Unknown]

NARRATIVE: CASE EVENT DATE: 20060623
